FAERS Safety Report 15904632 (Version 1)
Quarter: 2019Q1

REPORT INFORMATION
  Report Type: Report from Study
  Country: US (occurrence: US)
  Receive Date: 20190204
  Receipt Date: 20190204
  Transmission Date: 20190417
  Serious: Yes (Other)
  Sender: FDA-Public Use
  Company Number: US-AMGEN-USASL2018177451

PATIENT
  Age: 67 Year
  Sex: Male
  Weight: 106.58 kg

DRUGS (3)
  1. REPATHA [Suspect]
     Active Substance: EVOLOCUMAB
     Indication: LOW DENSITY LIPOPROTEIN INCREASED
  2. REPATHA [Suspect]
     Active Substance: EVOLOCUMAB
     Indication: HYPERLIPIDAEMIA
  3. REPATHA [Suspect]
     Active Substance: EVOLOCUMAB
     Indication: HYPERCHOLESTEROLAEMIA
     Dosage: 140 MG, Q2WK
     Route: 058
     Dates: start: 20180913, end: 20181210

REACTIONS (12)
  - Vision blurred [Recovering/Resolving]
  - Arthralgia [Recovering/Resolving]
  - Back pain [Recovering/Resolving]
  - Gait disturbance [Recovering/Resolving]
  - Influenza like illness [Recovering/Resolving]
  - Pain [Not Recovered/Not Resolved]
  - Rhinorrhoea [Recovering/Resolving]
  - Herpes zoster [Recovering/Resolving]
  - Dyspnoea [Recovering/Resolving]
  - Blood pressure increased [Recovering/Resolving]
  - Musculoskeletal pain [Recovering/Resolving]
  - Nasopharyngitis [Recovering/Resolving]

NARRATIVE: CASE EVENT DATE: 20181113
